FAERS Safety Report 23198029 (Version 1)
Quarter: 2023Q4

REPORT INFORMATION
  Report Type: Spontaneous
  Country: ES (occurrence: None)
  Receive Date: 20231117
  Receipt Date: 20231117
  Transmission Date: 20240110
  Serious: Yes (Hospitalization, Other)
  Sender: FDA-Public Use
  Company Number: 2023A259144

PATIENT
  Age: 59 Year
  Sex: Female

DRUGS (4)
  1. FULVESTRANT [Suspect]
     Active Substance: FULVESTRANT
     Route: 030
  2. PALBOCICLIB [Suspect]
     Active Substance: PALBOCICLIB
     Dosage: 125 MG/M2
     Route: 028
     Dates: start: 20230522
  3. LETROZOLE [Concomitant]
     Active Substance: LETROZOLE
     Dosage: 2.5 MG/DAY
  4. CAPECITABINE [Concomitant]
     Active Substance: CAPECITABINE
     Dates: start: 20230207

REACTIONS (11)
  - Intestinal obstruction [Recovered/Resolved]
  - Peritonitis [Unknown]
  - Peritoneal fluid analysis abnormal [Unknown]
  - Portal vein thrombosis [Unknown]
  - Liver abscess [Unknown]
  - Metastases to peritoneum [Unknown]
  - General physical health deterioration [Unknown]
  - Pyrexia [Unknown]
  - Asthenia [Unknown]
  - Decreased appetite [Unknown]
  - Early satiety [Unknown]

NARRATIVE: CASE EVENT DATE: 20230816
